FAERS Safety Report 4269917-5 (Version None)
Quarter: 2004Q1

REPORT INFORMATION
  Report Type: 
  Country: None (occurrence: None)
  Receive Date: 20040113
  Receipt Date: 20040113
  Transmission Date: 20041129
  Serious: Yes (Hospitalization)
  Sender: FDA-Public Use
  Company Number: None

PATIENT
  Age: 81 Year
  Sex: Male

DRUGS (10)
  1. METOPROLOL [Suspect]
     Indication: HYPERTENSION
     Dosage: 100  MG BID
     Dates: start: 20000301
  2. GLYBURIDE [Concomitant]
  3. LISINOPRIL [Concomitant]
  4. LORATADINE [Concomitant]
  5. ZOCOR [Concomitant]
  6. PAROXETINE [Concomitant]
  7. TERAZOSIN HCL [Concomitant]
  8. FELODIPINE [Concomitant]
  9. METFORMIN HCL [Concomitant]
  10. ASPIRIN [Concomitant]

REACTIONS (2)
  - ATRIOVENTRICULAR BLOCK FIRST DEGREE [None]
  - HEART RATE DECREASED [None]
